FAERS Safety Report 5280270-0 (Version None)
Quarter: 2007Q1

REPORT INFORMATION
  Report Type: 
  Country: None (occurrence: None)
  Receive Date: 20070329
  Receipt Date: 20070322
  Transmission Date: 20070707
  Serious: Yes (Hospitalization, Other)
  Sender: FDA-Public Use
  Company Number: US-GLAXOSMITHKLINE-A0644292A

PATIENT
  Age: 38 Year
  Sex: Female

DRUGS (2)
  1. VALTREX [Suspect]
     Route: 048
     Dates: start: 20070213, end: 20070228
  2. NO CONCURRENT MEDICATION [Concomitant]

REACTIONS (12)
  - AGGRESSION [None]
  - AGITATION [None]
  - ANGER [None]
  - CONFUSIONAL STATE [None]
  - FATIGUE [None]
  - HALLUCINATION [None]
  - HALLUCINATION, VISUAL [None]
  - LOSS OF CONSCIOUSNESS [None]
  - MANIA [None]
  - MENTAL IMPAIRMENT [None]
  - PSYCHOTIC DISORDER [None]
  - THINKING ABNORMAL [None]
